FAERS Safety Report 7359718-3 (Version None)
Quarter: 2011Q1

REPORT INFORMATION
  Report Type: 
  Country: None (occurrence: None)
  Receive Date: 20110317
  Receipt Date: 20081009
  Transmission Date: 20110831
  Serious: Yes (Death, Hospitalization, Other)
  Sender: FDA-Public Use
  Company Number: US-BAYER-200835446NA

PATIENT
  Sex: Male
  Weight: 94.2 kg

DRUGS (17)
  1. CELEXA [Concomitant]
     Dosage: 30 MG, UNK
     Route: 048
     Dates: start: 19991228
  2. SURVANTA [Concomitant]
     Dosage: UNK
     Route: 042
     Dates: start: 20000825, end: 20000825
  3. ISOFLURANE [Concomitant]
     Dosage: UNK UNK, UNK
     Route: 042
     Dates: start: 20000825, end: 20000825
  4. EPINEPHRINE [Concomitant]
     Dosage: 14 ML, UNK
     Route: 042
     Dates: start: 20000825, end: 20000825
  5. TRASYLOL [Suspect]
     Dosage: 50 CC/HR
     Route: 042
     Dates: start: 20000825, end: 20000825
  6. HEPARIN [Concomitant]
     Dosage: 10000 U, UNK
     Route: 042
     Dates: start: 20000825
  7. DOBUTAMINE [Concomitant]
     Dosage: 11 ML, UNK
     Route: 042
     Dates: start: 20000825, end: 20000825
  8. PROCRIT [Concomitant]
     Dosage: 25000 U, UNK
     Route: 065
     Dates: start: 19990527
  9. PHOSLO [Concomitant]
     Dosage: UNK UNK, UNK
     Route: 048
     Dates: start: 19990511
  10. TRASYLOL [Suspect]
     Indication: CARDIOPULMONARY BYPASS
     Dosage: 1 ML, ONCE
     Route: 042
     Dates: start: 20000825
  11. TRASYLOL [Suspect]
     Indication: MITRAL VALVE REPLACEMENT
     Dosage: 200 ML, ONCE
     Route: 042
     Dates: start: 20000825, end: 20000825
  12. COUMADIN [Concomitant]
     Dosage: 7.5 MG, QD
     Route: 048
     Dates: start: 19990511
  13. PREVACID [Concomitant]
     Dosage: 30 MG, UNK
     Route: 048
     Dates: start: 19990228
  14. VECURONIUM BROMIDE [Concomitant]
     Dosage: UNK UNK, UNK
     Route: 042
     Dates: start: 20000825
  15. ANCEF [Concomitant]
     Dosage: 1.5 G, UNK
     Route: 042
     Dates: start: 20000825, end: 20000825
  16. NEPHROCAPS [Concomitant]
  17. VERSED [Concomitant]
     Dosage: UNK UNK, UNK
     Route: 042
     Dates: start: 20000825, end: 20000825

REACTIONS (15)
  - UNEVALUABLE EVENT [None]
  - FEAR [None]
  - COMA [None]
  - RENAL INJURY [None]
  - INJURY [None]
  - AMNESIA [None]
  - MULTI-ORGAN FAILURE [None]
  - DEATH [None]
  - EMOTIONAL DISTRESS [None]
  - ANXIETY [None]
  - RENAL IMPAIRMENT [None]
  - STRESS [None]
  - PAIN [None]
  - RENAL FAILURE [None]
  - ANHEDONIA [None]
